FAERS Safety Report 6179149-1 (Version None)
Quarter: 2009Q2

REPORT INFORMATION
  Report Type: 
  Country: None (occurrence: None)
  Receive Date: 20090430
  Receipt Date: 20090421
  Transmission Date: 20091009
  Serious: Yes (Death)
  Sender: FDA-Public Use
  Company Number: 2009-195418-NL

PATIENT

DRUGS (1)
  1. REMERON [Suspect]

REACTIONS (1)
  - OEDEMA [None]
